FAERS Safety Report 20233104 (Version 3)
Quarter: 2021Q4

REPORT INFORMATION
  Report Type: Report from Study
  Country: AT (occurrence: AT)
  Receive Date: 20211227
  Receipt Date: 20211230
  Transmission Date: 20220303
  Serious: Yes (Congenital Anomaly)
  Sender: FDA-Public Use
  Company Number: AT-Eisai Medical Research-EC-2021-104708

PATIENT

DRUGS (3)
  1. TOPAMAX [Suspect]
     Active Substance: TOPIRAMATE
     Indication: Product used for unknown indication
     Dosage: UNKNOWN DOSE AND FREQUENCY
     Route: 064
     Dates: end: 2019
  2. LAMOTRIGINE [Suspect]
     Active Substance: LAMOTRIGINE
     Indication: Product used for unknown indication
     Dosage: UNKNOWN DOSE AND FREQUENCY
     Route: 064
     Dates: end: 2019
  3. PERAMPANEL [Suspect]
     Active Substance: PERAMPANEL
     Indication: Product used for unknown indication
     Route: 064
     Dates: end: 2019

REACTIONS (2)
  - Foetal exposure during pregnancy [Unknown]
  - Opitz trigonocephaly syndrome [Unknown]

NARRATIVE: CASE EVENT DATE: 20190101
